FAERS Safety Report 7069943-7 (Version None)
Quarter: 2010Q4

REPORT INFORMATION
  Report Type: 
  Country: None (occurrence: None)
  Receive Date: 20101028
  Receipt Date: 20100909
  Transmission Date: 20110411
  Serious: No
  Sender: FDA-Public Use
  Company Number: US-WYE-H16675810

PATIENT
  Age: 64 Year
  Sex: Female
  Weight: 119.86 kg

DRUGS (2)
  1. ADVIL [Suspect]
     Indication: MUSCULOSKELETAL PAIN
     Dosage: 2 TABLETS AS NEEDED
     Route: 048
     Dates: start: 20100301
  2. ACETYLSALICYLIC ACID [Concomitant]

REACTIONS (1)
  - DRUG EFFECT DECREASED [None]
